FAERS Safety Report 14999754 (Version 1)
Quarter: 2018Q2

REPORT INFORMATION
  Report Type: Report from Study
  Country: None (occurrence: ES)
  Receive Date: 20180612
  Receipt Date: 20180612
  Transmission Date: 20180711
  Serious: Yes (Other)
  Sender: FDA-Public Use
  Company Number: ES-BAUSCH-BL-2018-016397

PATIENT
  Age: 51 Year
  Sex: Female

DRUGS (10)
  1. DULOXETINE. [Suspect]
     Active Substance: DULOXETINE
     Indication: PAIN MANAGEMENT
     Dosage: 60MG/ 24 HOURS
     Route: 065
     Dates: start: 201705
  2. FENTANYL. [Suspect]
     Active Substance: FENTANYL
     Indication: BREAKTHROUGH PAIN
     Dosage: 200 MICROGRAM, 6-7 RESCUES PER DAY
     Route: 060
     Dates: start: 201709
  3. DEXAMETHASONE. [Suspect]
     Active Substance: DEXAMETHASONE
     Indication: PAIN MANAGEMENT
     Dosage: 4 MG, UNKNOWN
     Route: 065
     Dates: start: 201801
  4. FENTANYL. [Suspect]
     Active Substance: FENTANYL
     Dosage: 300 MICROGRAM, 5-6 RESCUES PER DAY
     Route: 060
     Dates: start: 201801
  5. MORPHINE                           /00036303/ [Suspect]
     Active Substance: MORPHINE HYDROCHLORIDE
     Indication: PAIN MANAGEMENT
     Dosage: 60 MG, 24 HOURS INFUSION
     Route: 058
     Dates: start: 201801
  6. TAPENTADOL [Suspect]
     Active Substance: TAPENTADOL
     Indication: PAIN MANAGEMENT
     Dosage: 50-0-50
     Route: 065
  7. METOCLOPRAMIDE. [Suspect]
     Active Substance: METOCLOPRAMIDE
     Indication: PAIN MANAGEMENT
     Route: 065
     Dates: start: 201801
  8. PREGABALIN. [Suspect]
     Active Substance: PREGABALIN
     Indication: PAIN MANAGEMENT
     Dosage: 75-0-75
     Route: 065
     Dates: start: 201709
  9. TAPENTADOL [Suspect]
     Active Substance: TAPENTADOL
     Dosage: 100-0-100
     Route: 065
  10. TAPENTADOL [Suspect]
     Active Substance: TAPENTADOL
     Dosage: 150-0-150
     Route: 065
     Dates: start: 201709

REACTIONS (2)
  - Pulmonary embolism [Unknown]
  - Inappropriate schedule of drug administration [Recovered/Resolved]

NARRATIVE: CASE EVENT DATE: 2017
